FAERS Safety Report 10800801 (Version 2)
Quarter: 2015Q1

REPORT INFORMATION
  Report Type: Spontaneous
  Country: US (occurrence: US)
  Receive Date: 20150216
  Receipt Date: 20150216
  Transmission Date: 20150721
  Serious: No
  Sender: FDA-Public Use
  Company Number: US-ALLERGAN-1425462US

PATIENT
  Age: 49 Year
  Sex: Female

DRUGS (3)
  1. NORTRIPTYLINE [Concomitant]
     Active Substance: NORTRIPTYLINE
     Dosage: UNK
  2. PREDNISONE. [Concomitant]
     Active Substance: PREDNISONE
     Dosage: UNK
  3. RESTASIS [Suspect]
     Active Substance: CYCLOSPORINE
     Indication: DRY EYE
     Dosage: 2 GTT, UNK
     Route: 047
     Dates: start: 20141203, end: 20141205

REACTIONS (5)
  - Headache [Unknown]
  - Ocular hyperaemia [Recovering/Resolving]
  - Vision blurred [Unknown]
  - Conjunctivitis [Unknown]
  - Eye pain [Not Recovered/Not Resolved]
